FAERS Safety Report 16472743 (Version 1)
Quarter: 2019Q2

REPORT INFORMATION
  Report Type: Spontaneous
  Country: US (occurrence: US)
  Receive Date: 20190625
  Receipt Date: 20190625
  Transmission Date: 20190711
  Serious: Yes (Other)
  Sender: FDA-Public Use
  Company Number: US-SA-2019SA164767

PATIENT
  Sex: Female

DRUGS (1)
  1. DULCOEASE [Suspect]
     Active Substance: DOCUSATE SODIUM
     Dosage: UNK UNK, UNK
     Route: 065

REACTIONS (4)
  - Expired product administered [Unknown]
  - Pain [Unknown]
  - Choking [Unknown]
  - Product shape issue [Unknown]
